FAERS Safety Report 5616090-4 (Version None)
Quarter: 2008Q1

REPORT INFORMATION
  Report Type: 
  Country: None (occurrence: None)
  Receive Date: 20080206
  Receipt Date: 20080125
  Transmission Date: 20080703
  Serious: Yes (Other)
  Sender: FDA-Public Use
  Company Number: DE-PFIZER INC-2008005856

PATIENT
  Sex: Female
  Weight: 53 kg

DRUGS (3)
  1. REVATIO [Suspect]
     Indication: PULMONARY HYPERTENSION
     Route: 048
  2. MEDYN [Concomitant]
     Dosage: DAILY DOSE:60MG-FREQ:DAILY
     Route: 048
  3. KALINOR [Concomitant]
     Route: 048

REACTIONS (1)
  - BLOOD THYROID STIMULATING HORMONE INCREASED [None]
